FAERS Safety Report 13433423 (Version 1)
Quarter: 2017Q2

REPORT INFORMATION
  Report Type: Spontaneous
  Country: SE (occurrence: SE)
  Receive Date: 20170412
  Receipt Date: 20170412
  Transmission Date: 20170830
  Serious: Yes (Hospitalization)
  Sender: FDA-Public Use
  Company Number: SE-TEVA-757783ISR

PATIENT
  Age: 26 Year
  Sex: Female

DRUGS (5)
  1. OXYCONTIN [Concomitant]
     Active Substance: OXYCODONE HYDROCHLORIDE
  2. BETAPRED [Concomitant]
     Active Substance: BETAMETHASONE SODIUM PHOSPHATE
  3. ALVEDON [Concomitant]
     Active Substance: ACETAMINOPHEN
  4. PLAQUENIL [Concomitant]
     Active Substance: HYDROXYCHLOROQUINE SULFATE
  5. CITALOPRAM [Suspect]
     Active Substance: CITALOPRAM HYDROBROMIDE

REACTIONS (9)
  - Gamma-glutamyltransferase [Unknown]
  - Overdose [Unknown]
  - International normalised ratio [Unknown]
  - Alanine aminotransferase [Unknown]
  - Aspartate aminotransferase [Unknown]
  - Analgesic drug level increased [Unknown]
  - Blood lactate dehydrogenase [Unknown]
  - Suicide attempt [Unknown]
  - Toxicity to various agents [Unknown]
